FAERS Safety Report 15133464 (Version 2)
Quarter: 2018Q3

REPORT INFORMATION
  Report Type: Spontaneous
  Country: US (occurrence: US)
  Receive Date: 20180712
  Receipt Date: 20180911
  Transmission Date: 20181010
  Serious: No
  Sender: FDA-Public Use
  Company Number: US-PFIZER INC-2018280056

PATIENT
  Age: 80 Year
  Sex: Male

DRUGS (1)
  1. EUCRISA [Suspect]
     Active Substance: CRISABOROLE
     Indication: RASH
     Dosage: 1 APPLICATION TWICE PER DAY AS NEEDED
     Route: 061
     Dates: start: 20180612, end: 20180624

REACTIONS (6)
  - Erythema [Unknown]
  - Swelling face [Unknown]
  - Urticaria [Unknown]
  - Rash [Recovered/Resolved]
  - Drug hypersensitivity [Unknown]
  - Condition aggravated [Recovered/Resolved]

NARRATIVE: CASE EVENT DATE: 20180612
